FAERS Safety Report 7466536-4 (Version None)
Quarter: 2011Q2

REPORT INFORMATION
  Report Type: 
  Country: None (occurrence: None)
  Receive Date: 20110509
  Receipt Date: 20110427
  Transmission Date: 20111010
  Serious: Yes (Death)
  Sender: FDA-Public Use
  Company Number: IN-WATSON-2011-06207

PATIENT
  Age: 14 Year
  Sex: Male

DRUGS (1)
  1. FLUOROURACIL [Suspect]
     Indication: NASOPHARYNGEAL CANCER
     Dosage: 750 MG/M2 DAY 1 AND 2

REACTIONS (3)
  - DIZZINESS [None]
  - CONGESTIVE CARDIOMYOPATHY [None]
  - CIRCULATORY COLLAPSE [None]
